FAERS Safety Report 9694846 (Version 3)
Quarter: 2013Q4

REPORT INFORMATION
  Report Type: Report from Study
  Country: IT (occurrence: IT)
  Receive Date: 20131119
  Receipt Date: 20131206
  Transmission Date: 20140711
  Serious: Yes (Hospitalization)
  Sender: FDA-Public Use
  Company Number: IT-ROCHE-1220708

PATIENT
  Age: 62 Year
  Sex: Male
  Weight: 80 kg

DRUGS (18)
  1. RIBAVIRIN [Suspect]
     Indication: CHRONIC HEPATITIS C
     Route: 048
     Dates: start: 20130411, end: 20130418
  2. RIBAVIRIN [Suspect]
     Route: 048
     Dates: start: 20130503
  3. PEG-INTERFERON LAMBDA [Suspect]
     Indication: CHRONIC HEPATITIS C
     Route: 058
     Dates: start: 20130411, end: 20130418
  4. PEG-INTERFERON LAMBDA [Suspect]
     Route: 058
     Dates: start: 20130502
  5. DACLATASVIR [Suspect]
     Indication: CHRONIC HEPATITIS C
     Route: 048
     Dates: start: 20130411, end: 20130418
  6. DACLATASVIR [Suspect]
     Route: 048
     Dates: start: 20130503
  7. NEORAL [Concomitant]
     Route: 065
     Dates: start: 201102
  8. PREDNISONE [Concomitant]
     Route: 065
     Dates: start: 201102
  9. ATENOLOL [Concomitant]
     Route: 065
     Dates: start: 2010
  10. SANDIMMUN NEORAL [Concomitant]
     Indication: PROPHYLAXIS AGAINST TRANSPLANT REJECTION
     Route: 065
     Dates: start: 20120101, end: 20131111
  11. EUTIROX [Concomitant]
  12. DELTACORTENE [Concomitant]
  13. TAVOR (ITALY) [Concomitant]
  14. ATENOLOL [Concomitant]
  15. ALLOPURINOL [Concomitant]
  16. VITAMIN E ACETATE [Concomitant]
  17. OMEGA 3 ACID ETHYL ESTERS [Concomitant]
  18. TAMSULOSIN HYDROCHLORIDE [Concomitant]

REACTIONS (1)
  - Hyperbilirubinaemia [Recovered/Resolved]
